FAERS Safety Report 4906210-9 (Version None)
Quarter: 2006Q1

REPORT INFORMATION
  Report Type: 
  Country: None (occurrence: None)
  Receive Date: 20060209
  Receipt Date: 20060116
  Transmission Date: 20060701
  Serious: Yes (Disabling)
  Sender: FDA-Public Use
  Company Number: PHMT2006CA00540

PATIENT
  Age: 82 Year
  Sex: Male

DRUGS (4)
  1. COMTAN [Suspect]
     Indication: PARKINSON'S DISEASE
     Dosage: 1000 MG, UNK
     Route: 048
     Dates: start: 20050920, end: 20060123
  2. SINEMET [Concomitant]
     Dosage: 100/25 5 TIMES A DAY
     Route: 048
  3. EFFEXOR XR [Concomitant]
     Dosage: 37.5 MG, QD
     Route: 048
  4. ATIVAN [Concomitant]
     Dosage: 0.5 MG, QHS
     Route: 048

REACTIONS (7)
  - ABDOMINAL PAIN UPPER [None]
  - BURN OESOPHAGEAL [None]
  - DYSPHAGIA [None]
  - OESOPHAGEAL PAIN [None]
  - ORAL PAIN [None]
  - STOMATITIS [None]
  - WRONG TECHNIQUE IN DRUG USAGE PROCESS [None]
